FAERS Safety Report 10062660 (Version 1)
Quarter: 2014Q2

REPORT INFORMATION
  Report Type: Spontaneous
  Country: US (occurrence: US)
  Receive Date: 20140407
  Receipt Date: 20140407
  Transmission Date: 20141212
  Serious: Yes (Other)
  Sender: FDA-Public Use
  Company Number: US-TEVA-473432USA

PATIENT
  Age: 31 Year
  Sex: Female
  Weight: 50.85 kg

DRUGS (2)
  1. PARAGARD 380A [Suspect]
     Indication: CONTRACEPTION
     Route: 015
     Dates: start: 20140319, end: 20140402
  2. MIRENA [Concomitant]
     Indication: CONTRACEPTION
     Route: 015
     Dates: start: 201310, end: 20140319

REACTIONS (1)
  - Device dislocation [Recovered/Resolved]
